FAERS Safety Report 13307774 (Version 1)
Quarter: 2017Q1

REPORT INFORMATION
  Report Type: Spontaneous
  Country: US (occurrence: US)
  Receive Date: 20170308
  Receipt Date: 20170308
  Transmission Date: 20170428
  Serious: Yes (Other)
  Sender: FDA-Public Use
  Company Number: US-TEVA-746382USA

PATIENT
  Sex: Female

DRUGS (3)
  1. CLONAZEPAM. [Suspect]
     Active Substance: CLONAZEPAM
     Indication: ANXIETY
     Route: 065
     Dates: start: 2012
  2. CLONAZEPAM. [Suspect]
     Active Substance: CLONAZEPAM
     Indication: POST-TRAUMATIC STRESS DISORDER
  3. CLONAZEPAM. [Suspect]
     Active Substance: CLONAZEPAM
     Indication: PAIN

REACTIONS (9)
  - Hyperhidrosis [Unknown]
  - Product physical issue [Unknown]
  - Drug ineffective [Unknown]
  - Tremor [Unknown]
  - Spinal cord disorder [Unknown]
  - Drug detoxification [Unknown]
  - Product use issue [Unknown]
  - Heart rate increased [Unknown]
  - Adverse event [Unknown]

NARRATIVE: CASE EVENT DATE: 2016
